FAERS Safety Report 16996505 (Version 8)
Quarter: 2020Q3

REPORT INFORMATION
  Report Type: Report from Study
  Country: JP (occurrence: JP)
  Receive Date: 20191106
  Receipt Date: 20200803
  Transmission Date: 20201102
  Serious: Yes (Death, Hospitalization, Disabling, Other)
  Sender: FDA-Public Use
  Company Number: JP-ASTELLAS-2019JP002309

PATIENT
  Age: 67 Year
  Sex: Male
  Weight: 53 kg

DRUGS (9)
  1. VANCOMYCIN [Concomitant]
     Active Substance: VANCOMYCIN
     Indication: PRODUCT USED FOR UNKNOWN INDICATION
     Dosage: 1.5 G/DAY, UNKNOWN FREQ.
     Route: 042
     Dates: start: 20190207, end: 20190311
  2. ASP2215 [Suspect]
     Active Substance: GILTERITINIB
     Route: 048
     Dates: start: 20190319
  3. ASP2215 [Suspect]
     Active Substance: GILTERITINIB
     Dosage: 40 MG/DAY, UNKNOWN FREQ.
     Route: 048
     Dates: start: 20191001
  4. VANCOMYCIN [Concomitant]
     Active Substance: VANCOMYCIN
     Dosage: 1.5 G/DAY, UNKNOWN FREQ.
     Route: 042
     Dates: start: 20190706
  5. PROGRAF [Concomitant]
     Active Substance: TACROLIMUS
     Indication: PROPHYLAXIS AGAINST GRAFT VERSUS HOST DISEASE
     Dosage: UNK UNK, UNKNOWN FREQ.
     Route: 065
  6. MEROPENEM. [Concomitant]
     Active Substance: MEROPENEM
     Dosage: 2 G/DAY, UNKNOWN FREQ.
     Route: 042
     Dates: start: 20190621
  7. FUNGUARD [Concomitant]
     Active Substance: MICAFUNGIN SODIUM
     Indication: PRODUCT USED FOR UNKNOWN INDICATION
     Dosage: 300 MG/DAY, UNKNOWN FREQ.
     Route: 042
     Dates: start: 20190208, end: 20190318
  8. ASP2215 [Suspect]
     Active Substance: GILTERITINIB
     Indication: ACUTE MYELOID LEUKAEMIA RECURRENT
     Route: 048
     Dates: start: 20190130, end: 20190308
  9. MEROPENEM. [Concomitant]
     Active Substance: MEROPENEM
     Indication: PRODUCT USED FOR UNKNOWN INDICATION
     Dosage: 3 G/DAY, UNKNOWN FREQ.
     Route: 042
     Dates: start: 20190203, end: 20190304

REACTIONS (7)
  - Infective spondylitis [Recovering/Resolving]
  - Blood creatine phosphokinase increased [Recovered/Resolved]
  - Lumbar vertebral fracture [Unknown]
  - Pneumonia [Recovered/Resolved]
  - Pleural effusion [Recovered/Resolved]
  - Hypophosphataemia [Not Recovered/Not Resolved]
  - Acute myeloid leukaemia [Fatal]

NARRATIVE: CASE EVENT DATE: 20190203
